FAERS Safety Report 20868834 (Version 3)
Quarter: 2022Q2

REPORT INFORMATION
  Report Type: Spontaneous
  Country: US (occurrence: US)
  Receive Date: 20220524
  Receipt Date: 20220627
  Transmission Date: 20220721
  Serious: No
  Sender: FDA-Public Use
  Company Number: US-PFIZER INC-202200742879

PATIENT

DRUGS (1)
  1. PREMARIN [Suspect]
     Active Substance: ESTROGENS, CONJUGATED
     Dosage: UNK
     Dates: end: 2020

REACTIONS (4)
  - General physical health deterioration [Unknown]
  - Bone density abnormal [Unknown]
  - Muscle strength abnormal [Unknown]
  - Skin disorder [Unknown]
